FAERS Safety Report 14690341 (Version 1)
Quarter: 2018Q1

REPORT INFORMATION
  Report Type: Report from Study
  Country: CA (occurrence: CA)
  Receive Date: 20180328
  Receipt Date: 20180328
  Transmission Date: 20180509
  Serious: Yes (Other)
  Sender: FDA-Public Use
  Company Number: CA-BEH-2018089107

PATIENT
  Sex: Female

DRUGS (3)
  1. BERINERT [Suspect]
     Active Substance: HUMAN C1-ESTERASE INHIBITOR
     Indication: HEREDITARY ANGIOEDEMA
     Dosage: 1500 IU, PRN
     Route: 042
  2. DEPO-PROVERA [Concomitant]
     Active Substance: MEDROXYPROGESTERONE ACETATE
  3. TERBINAFINE HYDROCHLORIDE. [Concomitant]
     Active Substance: TERBINAFINE HYDROCHLORIDE

REACTIONS (2)
  - Face injury [Unknown]
  - Syncope [Unknown]
